FAERS Safety Report 12939803 (Version 2)
Quarter: 2018Q2

REPORT INFORMATION
  Report Type: Report from Study
  Country: None (occurrence: US)
  Receive Date: 20161115
  Receipt Date: 20180601
  Transmission Date: 20180711
  Serious: Yes (Hospitalization, Other)
  Sender: FDA-Public Use
  Company Number: US-ABBVIE-16K-163-1702984-00

PATIENT
  Sex: Female
  Weight: 77.18 kg

DRUGS (4)
  1. HUMIRA [Suspect]
     Active Substance: ADALIMUMAB
     Indication: COLITIS ULCERATIVE
     Route: 058
     Dates: start: 2011
  2. HUMIRA [Suspect]
     Active Substance: ADALIMUMAB
     Route: 058
     Dates: start: 201205, end: 201605
  3. HUMIRA [Suspect]
     Active Substance: ADALIMUMAB
     Route: 058
     Dates: start: 2016
  4. HUMIRA [Suspect]
     Active Substance: ADALIMUMAB
     Indication: CROHN^S DISEASE
     Route: 058
     Dates: start: 201010, end: 2010

REACTIONS (15)
  - Gastrointestinal haemorrhage [Unknown]
  - Loss of consciousness [Recovered/Resolved]
  - Gastrointestinal infection [Recovered/Resolved]
  - Crohn^s disease [Recovered/Resolved with Sequelae]
  - Volvulus [Not Recovered/Not Resolved]
  - Abscess intestinal [Unknown]
  - Abdominal pain [Recovered/Resolved]
  - Gastrointestinal infection [Recovered/Resolved]
  - Hernia [Not Recovered/Not Resolved]
  - Rectal haemorrhage [Recovered/Resolved]
  - Large intestinal ulcer [Recovered/Resolved]
  - Abdominal distension [Recovered/Resolved]
  - Rectal haemorrhage [Recovered/Resolved]
  - Overgrowth bacterial [Recovered/Resolved]
  - Anaemia [Recovered/Resolved]

NARRATIVE: CASE EVENT DATE: 2010
